FAERS Safety Report 7107848-3 (Version None)
Quarter: 2010Q4

REPORT INFORMATION
  Report Type: 
  Country: None (occurrence: None)
  Receive Date: 20101117
  Receipt Date: 20101111
  Transmission Date: 20110411
  Serious: Yes (Death, Other)
  Sender: FDA-Public Use
  Company Number: JP-CELGENEUS-087-21880-10091494

PATIENT
  Sex: Male
  Weight: 63.1 kg

DRUGS (13)
  1. REVLIMID [Suspect]
     Indication: MULTIPLE MYELOMA
     Route: 048
     Dates: start: 20100730, end: 20100803
  2. LENADEX [Suspect]
     Indication: MULTIPLE MYELOMA
     Route: 048
     Dates: start: 20100730, end: 20100730
  3. HYPEN [Concomitant]
     Route: 048
     Dates: start: 20100729, end: 20100804
  4. OMEPRAL [Concomitant]
     Route: 048
     Dates: start: 20100729, end: 20100804
  5. MAGMITT [Concomitant]
     Route: 048
     Dates: start: 20100729, end: 20100804
  6. METHYLCOBAL [Concomitant]
     Route: 048
     Dates: start: 20100729, end: 20100804
  7. GABAPENTIN [Concomitant]
     Route: 048
     Dates: start: 20100729, end: 20100804
  8. WARFARIN POTASSIUM [Concomitant]
     Route: 048
     Dates: start: 20100729, end: 20100730
  9. ITRIZOLE [Concomitant]
     Dosage: 200MG/20ML
     Route: 048
     Dates: start: 20100730, end: 20100804
  10. BACTRIM [Concomitant]
     Dosage: 1 T
     Route: 048
     Dates: start: 20100730, end: 20100803
  11. HEPARIN SODIUM [Concomitant]
     Route: 050
     Dates: start: 20100729, end: 20100730
  12. ISOTONIC SODIUM CHLORIDE SOLUTION [Concomitant]
     Route: 050
     Dates: start: 20100729, end: 20100730
  13. LASIX [Concomitant]
     Route: 065

REACTIONS (25)
  - ACUTE RESPIRATORY DISTRESS SYNDROME [None]
  - ARRHYTHMIA [None]
  - BLOOD CREATININE INCREASED [None]
  - BLOOD UREA INCREASED [None]
  - BLOOD URINE PRESENT [None]
  - CARDIAC FAILURE [None]
  - CARDIOMEGALY [None]
  - DIALYSIS [None]
  - HAEMODYNAMIC INSTABILITY [None]
  - HAEMOGLOBIN DECREASED [None]
  - MULTI-ORGAN FAILURE [None]
  - MYOCARDIAL ISCHAEMIA [None]
  - NEISSERIA INFECTION [None]
  - NEUTROPHIL PERCENTAGE DECREASED [None]
  - PLATELET COUNT DECREASED [None]
  - PNEUMONIA [None]
  - PO2 DECREASED [None]
  - PROTEIN URINE PRESENT [None]
  - PULMONARY ALVEOLAR HAEMORRHAGE [None]
  - PULMONARY OEDEMA [None]
  - RED BLOOD CELL COUNT DECREASED [None]
  - RESPIRATORY FAILURE [None]
  - SPUTUM CULTURE POSITIVE [None]
  - TACHYCARDIA [None]
  - WHEEZING [None]
